FAERS Safety Report 9149840 (Version 1)
Quarter: 2013Q1

REPORT INFORMATION
  Report Type: Spontaneous
  Country: US (occurrence: US)
  Receive Date: 20130308
  Receipt Date: 20130308
  Transmission Date: 20140127
  Serious: No
  Sender: FDA-Public Use
  Company Number: US-ENDO PHARMACEUTICALS INC.-OPCR20120666

PATIENT
  Sex: Female

DRUGS (2)
  1. OPANA ER 20MG [Suspect]
     Indication: NEURALGIA
     Route: 048
     Dates: start: 20120418
  2. OPANA ER [Concomitant]
     Indication: NEURALGIA
     Dosage: UNK
     Route: 048
     Dates: start: 2008, end: 2012

REACTIONS (3)
  - Aphasia [Unknown]
  - Somnolence [Unknown]
  - Fatigue [Unknown]
